FAERS Safety Report 5365521-6 (Version None)
Quarter: 2007Q2

REPORT INFORMATION
  Report Type: 
  Country: None (occurrence: None)
  Receive Date: 20070621
  Receipt Date: 20070618
  Transmission Date: 20071010
  Serious: Yes (Hospitalization)
  Sender: FDA-Public Use
  Company Number: A0657187A

PATIENT
  Age: 87 Year
  Sex: Female

DRUGS (3)
  1. ADVAIR DISKUS 100/50 [Suspect]
     Dosage: 1PUFF TWICE PER DAY
     Route: 055
     Dates: start: 20070301
  2. COMBIVENT [Concomitant]
  3. CONCURRENT MEDICATIONS [Concomitant]

REACTIONS (6)
  - ALOPECIA [None]
  - BLOOD POTASSIUM DECREASED [None]
  - BLOOD SODIUM DECREASED [None]
  - COUGH [None]
  - DYSPHONIA [None]
  - NASOPHARYNGITIS [None]
